FAERS Safety Report 7226949-2 (Version None)
Quarter: 2011Q1

REPORT INFORMATION
  Report Type: 
  Country: None (occurrence: None)
  Receive Date: 20110105
  Receipt Date: 20101227
  Transmission Date: 20110831
  Serious: Yes (Disabling)
  Sender: FDA-Public Use
  Company Number: 1000017930

PATIENT
  Age: 44 Year
  Sex: Female
  Weight: 68 kg

DRUGS (3)
  1. LEVOTHYROXINE (LEVOTHYROXINE SODIUM) (LEVOTHYROXINE SODIUM) [Concomitant]
  2. CITALOPRAM HYDROBROMIDE [Suspect]
     Indication: PANIC DISORDER
     Dosage: 20 MG (20 MG, 1 IN 1 D), ORAL
     Route: 048
     Dates: start: 20080701, end: 20100201
  3. DIPIPERON (PIPAMPERONE HYDROCHLORIDE) (PIPAMPERONE HYDROCHLORIDE) [Concomitant]

REACTIONS (3)
  - WEIGHT INCREASED [None]
  - GASTROINTESTINAL MOTILITY DISORDER [None]
  - FLATULENCE [None]
